FAERS Safety Report 13069146 (Version 4)
Quarter: 2017Q1

REPORT INFORMATION
  Report Type: Spontaneous
  Country: US (occurrence: US)
  Receive Date: 20161228
  Receipt Date: 20170317
  Transmission Date: 20170428
  Serious: No
  Sender: FDA-Public Use
  Company Number: US-PFIZER INC-2016590041

PATIENT
  Age: 78 Year
  Sex: Female

DRUGS (5)
  1. LYRICA [Suspect]
     Active Substance: PREGABALIN
     Indication: BURNING SENSATION
     Dosage: UNK
     Dates: start: 20161219, end: 20161224
  2. IBRANCE [Concomitant]
     Active Substance: PALBOCICLIB
     Indication: BONE CANCER
  3. LYRICA [Suspect]
     Active Substance: PREGABALIN
     Indication: PAIN
     Dosage: 50 MG, UNK
     Dates: start: 20161209, end: 20161215
  4. IBRANCE [Concomitant]
     Active Substance: PALBOCICLIB
     Indication: BREAST CANCER
     Dosage: 100 MG, CYCLIC [ONCE A DAY FOR 21 DAYS]
     Dates: start: 201509
  5. FENTANYL. [Concomitant]
     Active Substance: FENTANYL
     Indication: BURNING SENSATION
     Dosage: UNK
     Dates: start: 20161209, end: 20161215

REACTIONS (1)
  - Drug ineffective [Unknown]
